FAERS Safety Report 5367186-6 (Version None)
Quarter: 2007Q2

REPORT INFORMATION
  Report Type: 
  Country: None (occurrence: None)
  Receive Date: 20070622
  Receipt Date: 20070511
  Transmission Date: 20071010
  Serious: Yes (Hospitalization)
  Sender: FDA-Public Use
  Company Number: US-ASTRAZENECA-2007UW12301

PATIENT
  Age: 59 Year
  Sex: Female
  Weight: 50 kg

DRUGS (8)
  1. SEROQUEL [Suspect]
     Indication: GENERALISED ANXIETY DISORDER
     Route: 048
     Dates: start: 20070509, end: 20070510
  2. LEXAPRO [Concomitant]
     Indication: DEPRESSION
     Route: 048
     Dates: start: 20050101, end: 20070502
  3. ATIVAN [Concomitant]
     Indication: SLEEP DISORDER
     Route: 048
     Dates: end: 20070501
  4. TEMAZEPAM [Concomitant]
     Indication: SLEEP DISORDER
     Route: 048
     Dates: end: 20070501
  5. FEXOFENADINE [Concomitant]
     Indication: SEASONAL ALLERGY
     Route: 048
  6. ALLEGRA D 24 HOUR [Concomitant]
     Indication: SEASONAL ALLERGY
     Dosage: 1 TABLET QD
     Route: 048
  7. SONATA [Concomitant]
     Indication: SLEEP DISORDER
     Dosage: 1 TABLET
     Route: 048
     Dates: end: 20070401
  8. PROPOXYPHENE NAPSYLATE AND ACETAMINOPHEN [Concomitant]
     Indication: MYALGIA
     Route: 048

REACTIONS (1)
  - SUICIDAL IDEATION [None]
